FAERS Safety Report 7775879-6 (Version None)
Quarter: 2011Q3

REPORT INFORMATION
  Report Type: 
  Country: None (occurrence: None)
  Receive Date: 20110923
  Receipt Date: 20110912
  Transmission Date: 20111222
  Serious: Yes (Hospitalization, Other)
  Sender: FDA-Public Use
  Company Number: US-ELI_LILLY_AND_COMPANY-US201104005904

PATIENT
  Sex: Female

DRUGS (2)
  1. FORTEO [Suspect]
     Indication: OSTEOPOROSIS
     Dosage: 20 UG, QD
     Route: 065
     Dates: start: 20110120
  2. FORTEO [Suspect]
     Dosage: 20 UG, QD

REACTIONS (5)
  - MUSCULAR WEAKNESS [None]
  - DIZZINESS [None]
  - FALL [None]
  - EYE INJURY [None]
  - HEART RATE INCREASED [None]
